FAERS Safety Report 4833349-9 (Version None)
Quarter: 2005Q4

REPORT INFORMATION
  Report Type: 
  Country: None (occurrence: None)
  Receive Date: 20051117
  Receipt Date: 20051108
  Transmission Date: 20060501
  Serious: Yes (Disabling)
  Sender: FDA-Public Use
  Company Number: 2005153001

PATIENT
  Age: 15 Year
  Sex: Female

DRUGS (1)
  1. ZOLOFT [Suspect]
     Indication: OBSESSIVE-COMPULSIVE DISORDER
     Dosage: (200 MG), ORAL
     Route: 048

REACTIONS (4)
  - DISSOCIATIVE AMNESIA [None]
  - HALLUCINATION, AUDITORY [None]
  - ILLUSION [None]
  - NIGHTMARE [None]
